FAERS Safety Report 11127438 (Version 1)
Quarter: 2015Q2

REPORT INFORMATION
  Report Type: Spontaneous
  Country: US (occurrence: US)
  Receive Date: 20150521
  Receipt Date: 20150521
  Transmission Date: 20150821
  Serious: Yes (Death, Hospitalization, Other)
  Sender: FDA-Public Use
  Company Number: US-TEVA-546507USA

PATIENT
  Age: 2 Year
  Sex: Male

DRUGS (1)
  1. BUPRENORPHINE [Suspect]
     Active Substance: BUPRENORPHINE
     Route: 065

REACTIONS (5)
  - Loss of consciousness [Not Recovered/Not Resolved]
  - Cardio-respiratory arrest [Fatal]
  - Victim of child abuse [Unknown]
  - Toxicity to various agents [Fatal]
  - Thermal burn [Unknown]

NARRATIVE: CASE EVENT DATE: 20140730
